FAERS Safety Report 20583102 (Version 1)
Quarter: 2022Q1

REPORT INFORMATION
  Report Type: Spontaneous
  Country: FR (occurrence: FR)
  Receive Date: 20220311
  Receipt Date: 20220311
  Transmission Date: 20220423
  Serious: Yes (Death)
  Sender: FDA-Public Use
  Company Number: None

PATIENT
  Age: 76 Year
  Sex: Male
  Weight: 76 kg

DRUGS (2)
  1. KEYTRUDA [Suspect]
     Active Substance: PEMBROLIZUMAB
     Indication: Lung squamous cell carcinoma metastatic
     Dosage: 200MG EVERY 3 WEEKS
     Route: 041
     Dates: start: 20211227, end: 20211227
  2. REPAGLINIDE [Suspect]
     Active Substance: REPAGLINIDE
     Indication: Type 2 diabetes mellitus
     Dosage: 0.75 MILLIGRAM, QD
     Route: 048
     Dates: start: 20211201, end: 20220120

REACTIONS (2)
  - Toxic epidermal necrolysis [Fatal]
  - Rash [Fatal]

NARRATIVE: CASE EVENT DATE: 20220109
